FAERS Safety Report 17468396 (Version 3)
Quarter: 2020Q1

REPORT INFORMATION
  Report Type: Spontaneous
  Country: CZ (occurrence: CZ)
  Receive Date: 20200227
  Receipt Date: 20200311
  Transmission Date: 20200409
  Serious: Yes (Life-Threatening, Other)
  Sender: FDA-Public Use
  Company Number: CZ-MYLANLABS-2020M1021809

PATIENT
  Age: 82 Year
  Sex: Male

DRUGS (12)
  1. BENDAMUSTINE HYDROCHLORIDE. [Suspect]
     Active Substance: BENDAMUSTINE HYDROCHLORIDE
     Indication: MANTLE CELL LYMPHOMA
     Dosage: 2 CYCLES OF R-BAC500
  2. CYTARABINE. [Suspect]
     Active Substance: CYTARABINE
     Indication: MANTLE CELL LYMPHOMA
     Dosage: SECOND CYCLE; R-CYTARABINE
  3. GEMCITABINE. [Suspect]
     Active Substance: GEMCITABINE
     Indication: MANTLE CELL LYMPHOMA STAGE III
     Dosage: COMPLETED 1 CYCLE OF R-GD (RITUXIMAB, GEMCITABINE AND DEXAMETHASONE) REGIMEN
  4. IBRUTINIB [Suspect]
     Active Substance: IBRUTINIB
     Indication: MANTLE CELL LYMPHOMA
     Dosage: UNK
  5. DEXAMETHASONE. [Suspect]
     Active Substance: DEXAMETHASONE
     Indication: MANTLE CELL LYMPHOMA STAGE III
     Dosage: COMPLETED 1 CYCLE OF R-GD (RITUXIMAB, GEMCITABINE AND DEXAMETHASONE) REGIMEN
  6. RITUXIMAB. [Suspect]
     Active Substance: RITUXIMAB
     Dosage: R-GD
  7. RITUXIMAB. [Suspect]
     Active Substance: RITUXIMAB
     Dosage: SECOND CYCLE; R-CYTARABINE
  8. BENDAMUSTINE HYDROCHLORIDE. [Suspect]
     Active Substance: BENDAMUSTINE HYDROCHLORIDE
     Dosage: 2 CYCLES OF R-BAC500
  9. RITUXIMAB. [Suspect]
     Active Substance: RITUXIMAB
     Indication: MANTLE CELL LYMPHOMA STAGE III
     Dosage: FIRST CYCLE; R-MINICHOP
  10. RITUXIMAB. [Suspect]
     Active Substance: RITUXIMAB
     Indication: MANTLE CELL LYMPHOMA
     Dosage: 2 CYCLES OF R-BAC500
  11. RITUXIMAB. [Suspect]
     Active Substance: RITUXIMAB
     Dosage: 2 CYCLES OF R-BAC500
  12. CHOP [Suspect]
     Active Substance: CYCLOPHOSPHAMIDE\DOXORUBICIN\PREDNISONE\VINCRISTINE
     Indication: MANTLE CELL LYMPHOMA
     Dosage: FIRST CYCLE; R-MINICHOP

REACTIONS (9)
  - Neutropenia [Recovered/Resolved]
  - Splenomegaly [Unknown]
  - Drug intolerance [Unknown]
  - Disease progression [Unknown]
  - Mantle cell lymphoma [Unknown]
  - Diabetic metabolic decompensation [Recovering/Resolving]
  - Product use in unapproved indication [Unknown]
  - Renal failure [Unknown]
  - Lymphocytosis [Unknown]
